FAERS Safety Report 7400747-9 (Version None)
Quarter: 2011Q2

REPORT INFORMATION
  Report Type: 
  Country: None (occurrence: None)
  Receive Date: 20110407
  Receipt Date: 20110331
  Transmission Date: 20111010
  Serious: Yes (Other)
  Sender: FDA-Public Use
  Company Number: A0920874A

PATIENT
  Age: 65 Year
  Sex: Female

DRUGS (1)
  1. SORIATANE [Suspect]
     Dosage: 10MG PER DAY
     Route: 048
     Dates: start: 20110101, end: 20110301

REACTIONS (1)
  - GRAND MAL CONVULSION [None]
